FAERS Safety Report 5479500-1 (Version None)
Quarter: 2007Q3

REPORT INFORMATION
  Report Type: 
  Country: None (occurrence: None)
  Receive Date: 20070913
  Receipt Date: 20070707
  Transmission Date: 20080115
  Serious: Yes (Other)
  Sender: FDA-Public Use
  Company Number: 38816

PATIENT
  Age: 61 Year
  Sex: Female
  Weight: 84.369 kg

DRUGS (1)
  1. PACLITAXEL [Suspect]
     Indication: BREAST CANCER
     Dosage: 350MG/IV Q 3 WEEKS
     Route: 042
     Dates: start: 20070702

REACTIONS (3)
  - BACK PAIN [None]
  - CHEST DISCOMFORT [None]
  - FLUSHING [None]
